FAERS Safety Report 6527106-5 (Version None)
Quarter: 2009Q4

REPORT INFORMATION
  Report Type: 
  Country: None (occurrence: None)
  Receive Date: 20091230
  Receipt Date: 20091218
  Transmission Date: 20100525
  Serious: Yes (Death, Life-Threatening, Disabling, Other)
  Sender: FDA-Public Use
  Company Number: 2009-02084

PATIENT
  Age: 79 Year
  Sex: Female
  Weight: 40 kg

DRUGS (7)
  1. VELCADE [Suspect]
     Indication: MULTIPLE MYELOMA
     Dosage: 1.3 MG/M2, INTRAVENOUS
     Route: 042
     Dates: start: 20090511, end: 20090514
  2. DECADRON [Suspect]
  3. SULFAMETHOXAZOLE AND TRIMETHOPRIM [Concomitant]
  4. DIOVAN [Concomitant]
  5. VFEND [Concomitant]
  6. BIOFERMIN R (STREPTOCOCCUS FAECALIS) [Concomitant]
  7. ZOLPIDEM TARTRATE [Concomitant]

REACTIONS (15)
  - BRONCHIAL WALL THICKENING [None]
  - CARDIAC FAILURE [None]
  - DISEASE PROGRESSION [None]
  - GENERALISED OEDEMA [None]
  - HYPOTENSION [None]
  - LARYNGEAL OEDEMA [None]
  - LUNG DISORDER [None]
  - MULTIPLE MYELOMA [None]
  - NEUROPATHY PERIPHERAL [None]
  - NO THERAPEUTIC RESPONSE [None]
  - PHARYNGEAL OEDEMA [None]
  - PLATELET COUNT DECREASED [None]
  - PLEURAL EFFUSION [None]
  - RENAL IMPAIRMENT [None]
  - RESPIRATORY FAILURE [None]
